FAERS Safety Report 14607758 (Version 1)
Quarter: 2018Q1

REPORT INFORMATION
  Report Type: Spontaneous
  Country: US (occurrence: US)
  Receive Date: 20180307
  Receipt Date: 20180307
  Transmission Date: 20180509
  Serious: No
  Sender: FDA-Public Use
  Company Number: US-GLAXOSMITHKLINE-US2018034804

PATIENT
  Sex: Female

DRUGS (2)
  1. MELOXICAM. [Suspect]
     Active Substance: MELOXICAM
     Indication: PRODUCT USED FOR UNKNOWN INDICATION
     Dosage: UNK
  2. VOLTAREN [Suspect]
     Active Substance: DICLOFENAC SODIUM
     Indication: PRODUCT USED FOR UNKNOWN INDICATION
     Dosage: UNK

REACTIONS (6)
  - Dyspnoea [Unknown]
  - Asthenia [Unknown]
  - Orthostatic hypotension [Unknown]
  - Adverse drug reaction [Unknown]
  - Off label use [Unknown]
  - Contraindicated product administered [Unknown]
